FAERS Safety Report 9843723 (Version 2)
Quarter: 2014Q1

REPORT INFORMATION
  Report Type: Spontaneous
  Country: US (occurrence: US)
  Receive Date: 20140126
  Receipt Date: 20140304
  Transmission Date: 20141002
  Serious: No
  Sender: FDA-Public Use
  Company Number: US-009507513-1401USA011022

PATIENT
  Sex: Female

DRUGS (1)
  1. COSOPT PF [Suspect]
     Dosage: 2 GTT, BID
     Route: 047
     Dates: start: 20120927

REACTIONS (2)
  - Expired drug administered [Unknown]
  - No adverse event [Unknown]
